FAERS Safety Report 4340871-0 (Version None)
Quarter: 2004Q2

REPORT INFORMATION
  Report Type: 
  Country: None (occurrence: None)
  Receive Date: 20040413
  Receipt Date: 20040407
  Transmission Date: 20050107
  Serious: Yes (Death, Other)
  Sender: FDA-Public Use
  Company Number: 2004US000333

PATIENT
  Age: 28 Year
  Sex: Female
  Weight: 112.5 kg

DRUGS (6)
  1. PROGRAF [Suspect]
     Indication: HEART TRANSPLANT
     Dosage: SEE IMAGE
     Route: 042
     Dates: start: 20040303, end: 20040317
  2. PROGRAF [Suspect]
     Indication: HEART TRANSPLANT
     Dosage: SEE IMAGE
     Route: 042
     Dates: start: 20030331
  3. CELLCEPT [Concomitant]
  4. AVAPRO [Concomitant]
  5. HYDRALAZINE HCL TAB [Concomitant]
  6. ZOLOFT [Concomitant]

REACTIONS (19)
  - ANURIA [None]
  - BACTERAEMIA [None]
  - BRADYCARDIA [None]
  - CARDIOGENIC SHOCK [None]
  - DYSPNOEA [None]
  - HAEMODIALYSIS [None]
  - HAEMOGLOBIN DECREASED [None]
  - HEART TRANSPLANT REJECTION [None]
  - HYPERTHERMIA [None]
  - HYPOAESTHESIA [None]
  - HYPOTENSION [None]
  - NAUSEA [None]
  - ORTHOPNOEA [None]
  - PARAESTHESIA [None]
  - PHARYNGOLARYNGEAL PAIN [None]
  - PLATELET COUNT DECREASED [None]
  - RENAL FAILURE ACUTE [None]
  - SWOLLEN TONGUE [None]
  - VOMITING [None]
